FAERS Safety Report 13681186 (Version 1)
Quarter: 2017Q2

REPORT INFORMATION
  Report Type: Spontaneous
  Country: GB (occurrence: GB)
  Receive Date: 20170623
  Receipt Date: 20170623
  Transmission Date: 20170830
  Serious: Yes (Hospitalization, Other)
  Sender: FDA-Public Use
  Company Number: PHFR2017GB004542

PATIENT
  Sex: Female

DRUGS (1)
  1. MONTELUKAST SODIUM. [Suspect]
     Active Substance: MONTELUKAST SODIUM
     Indication: ASTHMA
     Dosage: 10 MG, QD
     Route: 048

REACTIONS (10)
  - Dyspnoea [Unknown]
  - Discomfort [Unknown]
  - Product odour abnormal [Unknown]
  - Burning sensation [Unknown]
  - Product taste abnormal [Unknown]
  - Pain [Unknown]
  - Wheezing [Unknown]
  - Malaise [Unknown]
  - Chest discomfort [Unknown]
  - Chest pain [Unknown]
